FAERS Safety Report 5727446-3 (Version None)
Quarter: 2008Q2

REPORT INFORMATION
  Report Type: 
  Country: None (occurrence: None)
  Receive Date: 20080505
  Receipt Date: 20080424
  Transmission Date: 20081010
  Serious: Yes (Other)
  Sender: FDA-Public Use
  Company Number: BE-ASTRAZENECA-2008AC01066

PATIENT
  Age: 61 Year
  Sex: Female

DRUGS (1)
  1. NOLVADEX [Suspect]
     Route: 048

REACTIONS (1)
  - HYDROMETRA [None]
